FAERS Safety Report 14314832 (Version 2)
Quarter: 2018Q1

REPORT INFORMATION
  Report Type: Spontaneous
  Country: ES (occurrence: ES)
  Receive Date: 20171221
  Receipt Date: 20180105
  Transmission Date: 20180509
  Serious: Yes (Death, Hospitalization, Other)
  Sender: FDA-Public Use
  Company Number: ES-INCYTE CORPORATION-2017IN010972

PATIENT

DRUGS (5)
  1. ADIRO [Concomitant]
     Active Substance: ASPIRIN
     Indication: ACUTE MYOCARDIAL INFARCTION
     Dosage: 100 MG, QD
     Route: 065
     Dates: start: 200505, end: 20170912
  2. JAKAVI [Suspect]
     Active Substance: RUXOLITINIB
     Indication: POLYCYTHAEMIA VERA
  3. EUTIROX [Concomitant]
     Active Substance: LEVOTHYROXINE SODIUM
     Indication: THYROIDITIS CHRONIC
     Dosage: 75 MG, UNK
     Route: 065
     Dates: start: 200404, end: 20171009
  4. JAKAVI [Suspect]
     Active Substance: RUXOLITINIB
     Indication: MYELOFIBROSIS
     Dosage: 15 MG, BID
     Route: 048
     Dates: start: 20150304, end: 20170912
  5. HYDREA [Concomitant]
     Active Substance: HYDROXYUREA
     Indication: MYELOFIBROSIS
     Dosage: 500 MG, QD
     Route: 065
     Dates: start: 20170810, end: 20171010

REACTIONS (6)
  - Intestinal obstruction [Fatal]
  - Splenomegaly [Fatal]
  - Pyrexia [Fatal]
  - Vomiting [Unknown]
  - Myelofibrosis [Fatal]
  - Acute abdomen [Unknown]

NARRATIVE: CASE EVENT DATE: 20171009
